FAERS Safety Report 6590290-1 (Version None)
Quarter: 2010Q1

REPORT INFORMATION
  Report Type: 
  Country: None (occurrence: None)
  Receive Date: 20100219
  Receipt Date: 20100216
  Transmission Date: 20100710
  Serious: Yes (Death, Other)
  Sender: FDA-Public Use
  Company Number: PHHY2010JP03845

PATIENT
  Age: 56 Year
  Sex: Male

DRUGS (5)
  1. NEORAL [Suspect]
     Indication: INTERSTITIAL LUNG DISEASE
     Dosage: 100 MG IN TWO DIVIDED DOSES DAILY
     Route: 048
     Dates: start: 20090204, end: 20090210
  2. PREDNISOLONE [Suspect]
     Dosage: 25 MG DAILY
     Dates: start: 20080901
  3. STEROIDS NOS [Concomitant]
     Indication: INTERSTITIAL LUNG DISEASE
     Dosage: UNK
     Dates: start: 20081125
  4. FINIBAX [Concomitant]
  5. VORICONAZOLE [Concomitant]

REACTIONS (5)
  - ATYPICAL MYCOBACTERIAL INFECTION [None]
  - BACILLUS INFECTION [None]
  - MYCOBACTERIUM ABSCESSUS INFECTION [None]
  - PNEUMOMEDIASTINUM [None]
  - RESPIRATORY DISTRESS [None]
